FAERS Safety Report 17600001 (Version 1)
Quarter: 2020Q1

REPORT INFORMATION
  Report Type: Spontaneous
  Country: FR (occurrence: FR)
  Receive Date: 20200330
  Receipt Date: 20200330
  Transmission Date: 20200409
  Serious: Yes (Death, Other)
  Sender: FDA-Public Use
  Company Number: FR-SA-2020SA074506

PATIENT
  Age: 51 Year
  Sex: Female

DRUGS (1)
  1. LOVENOX [Suspect]
     Active Substance: ENOXAPARIN SODIUM
     Indication: KNEE ARTHROPLASTY
     Dosage: 1 DF, QD
     Route: 058
     Dates: start: 20200221, end: 20200302

REACTIONS (3)
  - Heparin-induced thrombocytopenia [Fatal]
  - Haematoma [Fatal]
  - Thrombophlebitis [Fatal]

NARRATIVE: CASE EVENT DATE: 202003
